FAERS Safety Report 7018950-9 (Version None)
Quarter: 2010Q3

REPORT INFORMATION
  Report Type: 
  Country: None (occurrence: None)
  Receive Date: 20100928
  Receipt Date: 20100831
  Transmission Date: 20110219
  Serious: Yes (Hospitalization, Other)
  Sender: FDA-Public Use
  Company Number: PHHY2010US62871

PATIENT
  Sex: Female

DRUGS (1)
  1. FEMARA [Suspect]
     Dosage: 2.5 MG DAILY
     Route: 048
     Dates: start: 20100723

REACTIONS (2)
  - MASTECTOMY [None]
  - POSTOPERATIVE FEVER [None]
